FAERS Safety Report 4947141-8 (Version None)
Quarter: 2006Q1

REPORT INFORMATION
  Report Type: 
  Country: None (occurrence: None)
  Receive Date: 20060201
  Receipt Date: 20051004
  Transmission Date: 20060701
  Serious: No
  Sender: FDA-Public Use
  Company Number: 2005PV002878

PATIENT
  Sex: Male

DRUGS (11)
  1. BYETTA [Suspect]
     Indication: DIABETES MELLITUS NON-INSULIN-DEPENDENT
     Dosage: 5 MCG; BID; SC
     Route: 058
     Dates: start: 20050927
  2. ACTOS [Concomitant]
  3. CRESTOR [Concomitant]
  4. FUROSEMIDE [Concomitant]
  5. GLUCOTROL XL [Concomitant]
  6. INDOCIN [Concomitant]
  7. LOTREL [Concomitant]
  8. METFORMIN HYDROCHLORIDE [Concomitant]
  9. NEXIUM [Concomitant]
  10. VITORIN [Concomitant]
  11. PROTONIX [Concomitant]

REACTIONS (2)
  - GOUTY ARTHRITIS [None]
  - SKIN REACTION [None]
